FAERS Safety Report 25423090 (Version 1)
Quarter: 2025Q2

REPORT INFORMATION
  Report Type: Spontaneous
  Country: US (occurrence: None)
  Receive Date: 20250610
  Receipt Date: 20250610
  Transmission Date: 20250716
  Serious: Yes (Hospitalization)
  Sender: FDA-CTU
  Company Number: None

PATIENT
  Age: 75 Year
  Sex: Male
  Weight: 74 kg

DRUGS (2)
  1. APIXABAN [Suspect]
     Active Substance: APIXABAN
     Indication: Atrial fibrillation
     Dosage: FREQUENCY : TWICE A DAY;?
     Route: 048
     Dates: end: 20241222
  2. ASPIRIN [Suspect]
     Active Substance: ASPIRIN

REACTIONS (4)
  - Cerebral haemorrhage [None]
  - Blood pressure increased [None]
  - Cerebral haemorrhage [None]
  - Amyloidosis [None]

NARRATIVE: CASE EVENT DATE: 20241222
